FAERS Safety Report 24544429 (Version 1)
Quarter: 2024Q4

REPORT INFORMATION
  Report Type: Spontaneous
  Country: BR (occurrence: BR)
  Receive Date: 20241024
  Receipt Date: 20241024
  Transmission Date: 20250115
  Serious: Yes (Other)
  Sender: CHEPLAPHARM
  Company Number: BR-CHEPLA-2024013267

PATIENT
  Age: 68 Year
  Sex: Female

DRUGS (3)
  1. CLONAZEPAM [Suspect]
     Active Substance: CLONAZEPAM
     Indication: Sleep disorder
     Dosage: MAH REF 115240011?DAILY DOSE: 4 MILLIGRAM
     Route: 048
  2. VASTAREL [Concomitant]
     Active Substance: TRIMETAZIDINE DIHYDROCHLORIDE
  3. Holmes [Concomitant]

REACTIONS (5)
  - Parkinson^s disease [Not Recovered/Not Resolved]
  - Dementia [Not Recovered/Not Resolved]
  - Product dispensing error [Unknown]
  - Suspected counterfeit product [Unknown]
  - Product use in unapproved indication [Not Recovered/Not Resolved]
